FAERS Safety Report 9455598 (Version 1)
Quarter: 2013Q3

REPORT INFORMATION
  Report Type: Spontaneous
  Country: US (occurrence: US)
  Receive Date: 20130813
  Receipt Date: 20130813
  Transmission Date: 20140515
  Serious: No
  Sender: FDA-Public Use
  Company Number: US-PFIZER INC-2013232183

PATIENT
  Sex: Male

DRUGS (1)
  1. NITROSTAT [Suspect]
     Dosage: UNK
     Dates: start: 1988

REACTIONS (3)
  - Nasopharyngitis [Unknown]
  - Feeling abnormal [Unknown]
  - Confusional state [Unknown]
